FAERS Safety Report 13941711 (Version 1)
Quarter: 2017Q3

REPORT INFORMATION
  Report Type: Spontaneous
  Country: US (occurrence: US)
  Receive Date: 20170906
  Receipt Date: 20170906
  Transmission Date: 20171127
  Serious: No
  Sender: FDA-Public Use
  Company Number: None

PATIENT
  Age: 56 Year
  Sex: Male
  Weight: 91.35 kg

DRUGS (18)
  1. VITAMIN D3 [Concomitant]
     Active Substance: CHOLECALCIFEROL
  2. METFORMIN [Concomitant]
     Active Substance: METFORMIN HYDROCHLORIDE
  3. CEFPODOXIME PROXETIL. [Concomitant]
     Active Substance: CEFPODOXIME PROXETIL
  4. OMEPRAZOLE. [Concomitant]
     Active Substance: OMEPRAZOLE
  5. DORZOLAMINDE/TIMOLOL [Concomitant]
  6. CLONAZEPAM. [Concomitant]
     Active Substance: CLONAZEPAM
  7. TYLENOL [Concomitant]
     Active Substance: ACETAMINOPHEN
  8. RESTASIS [Concomitant]
     Active Substance: CYCLOSPORINE
  9. HYDROCHLOROQUIN [Concomitant]
  10. LOW DOSE ASPIRIN [Concomitant]
     Active Substance: ASPIRIN
  11. MONOLUKAST [Concomitant]
  12. POTASSIUM [Concomitant]
     Active Substance: POTASSIUM
  13. GABAPENTIN. [Concomitant]
     Active Substance: GABAPENTIN
  14. METHOPREDNISOLONE [Concomitant]
  15. FOLIC ACID. [Concomitant]
     Active Substance: FOLIC ACID
  16. READI-CAT 2 [Suspect]
     Active Substance: BARIUM SULFATE
     Indication: ABDOMEN SCAN
     Dosage: ?          QUANTITY:1 BOTTLE;?
     Route: 048
  17. TRAVATAN Z [Concomitant]
     Active Substance: TRAVOPROST
  18. VITAMIN B12 [Concomitant]
     Active Substance: CYANOCOBALAMIN

REACTIONS (1)
  - Diarrhoea [None]

NARRATIVE: CASE EVENT DATE: 20170906
